FAERS Safety Report 14562960 (Version 2)
Quarter: 2018Q1

REPORT INFORMATION
  Report Type: Spontaneous
  Country: AT (occurrence: AT)
  Receive Date: 20180222
  Receipt Date: 20180228
  Transmission Date: 20180509
  Serious: Yes (Death)
  Sender: FDA-Public Use
  Company Number: AT-ABBVIE-18P-009-2265335-00

PATIENT
  Age: 57 Year
  Sex: Male
  Weight: 75 kg

DRUGS (1)
  1. VENCLYXTO [Suspect]
     Active Substance: VENETOCLAX
     Indication: ACUTE MYELOID LEUKAEMIA
     Route: 048
     Dates: start: 20171212, end: 20180115

REACTIONS (2)
  - Systemic mycosis [Fatal]
  - Death [Fatal]

NARRATIVE: CASE EVENT DATE: 20180124
